FAERS Safety Report 5528831-5 (Version None)
Quarter: 2007Q4

REPORT INFORMATION
  Report Type: 
  Country: None (occurrence: None)
  Receive Date: 20071114
  Receipt Date: 20070904
  Transmission Date: 20080405
  Serious: Yes (Other)
  Sender: FDA-Public Use
  Company Number: US-2007-033045

PATIENT
  Age: 46 Year
  Sex: Male
  Weight: 95.2 kg

DRUGS (1)
  1. ULTRAVIST (PHARMACY BULK) [Suspect]
     Indication: COMPUTERISED TOMOGRAM
     Dosage: 70 ML, 1 DOSE VIA POWER INJECTOR, INTRAVENOUS
     Route: 042
     Dates: start: 20070830, end: 20070830

REACTIONS (6)
  - CHEST DISCOMFORT [None]
  - DYSPNOEA [None]
  - FEELING COLD [None]
  - SENSATION OF FOREIGN BODY [None]
  - TREMOR [None]
  - URTICARIA [None]
